FAERS Safety Report 6960188-5 (Version None)
Quarter: 2010Q3

REPORT INFORMATION
  Report Type: 
  Country: None (occurrence: None)
  Receive Date: 20100901
  Receipt Date: 20100818
  Transmission Date: 20110219
  Serious: Yes (Other)
  Sender: FDA-Public Use
  Company Number: PHHY2010US55229

PATIENT
  Sex: Female

DRUGS (15)
  1. RECLAST [Suspect]
  2. GLUCOSAMINE [Concomitant]
  3. PREDNISONE [Concomitant]
  4. PERCOCET [Concomitant]
  5. VITAMIN-MINERAL COMPOUND TAB [Concomitant]
  6. PRILOSEC [Concomitant]
  7. ENALAPRIL MALEATE [Concomitant]
  8. CARDIZEM [Concomitant]
  9. CALCIUM [Concomitant]
  10. VALTREX [Concomitant]
  11. AMITRIPTYLINE HYDROCHLORIDE [Concomitant]
  12. SIMVASTATIN [Concomitant]
  13. FISH OIL [Concomitant]
  14. VITAMINS [Concomitant]
  15. CENTRUM SILVER [Concomitant]

REACTIONS (5)
  - ARTHRALGIA [None]
  - GAIT DISTURBANCE [None]
  - MUSCLE ATROPHY [None]
  - NAUSEA [None]
  - PYREXIA [None]
